FAERS Safety Report 8231661-7 (Version None)
Quarter: 2012Q1

REPORT INFORMATION
  Report Type: 
  Country: None (occurrence: None)
  Receive Date: 20120323
  Receipt Date: 20120321
  Transmission Date: 20120608
  Serious: Yes (Other)
  Sender: FDA-Public Use
  Company Number: US-PFIZER INC-2012074268

PATIENT
  Sex: Female
  Weight: 70.748 kg

DRUGS (7)
  1. CHANTIX [Suspect]
     Indication: SMOKING CESSATION THERAPY
     Dosage: 0.5 MG, 1X/DAY
     Route: 048
  2. INDOMETHACIN [Concomitant]
     Indication: RIB FRACTURE
  3. PREVACID [Concomitant]
     Indication: GASTRIC ULCER
     Dosage: UNK
  4. INDOMETHACIN [Concomitant]
     Indication: OSTEOARTHRITIS
  5. INDOMETHACIN [Concomitant]
     Indication: ANKLE FRACTURE
     Dosage: UNK
  6. INDOMETHACIN [Concomitant]
     Indication: CARPAL TUNNEL SYNDROME
  7. OMEPRAZOLE [Concomitant]
     Indication: GASTRIC ULCER
     Dosage: UNK

REACTIONS (3)
  - NEOPLASM MALIGNANT [None]
  - SINUSITIS [None]
  - WEIGHT DECREASED [None]
